FAERS Safety Report 9530788 (Version 1)
Quarter: 2013Q2

REPORT INFORMATION
  Report Type: Spontaneous
  Country: US (occurrence: None)
  Receive Date: 20130418
  Receipt Date: 20130418
  Transmission Date: 20140414
  Serious: Yes (Disabling)
  Sender: FDA-Public Use
  Company Number: 0406USA00649

PATIENT
  Sex: Female
  Weight: 104.3 kg

DRUGS (1)
  1. SINGULAIR [Suspect]
     Indication: ASTHMA
     Route: 048
     Dates: start: 20011001, end: 20020129

REACTIONS (2)
  - Hypoaesthesia [None]
  - Paraesthesia [None]
